FAERS Safety Report 7586198-5 (Version None)
Quarter: 2011Q2

REPORT INFORMATION
  Report Type: 
  Country: None (occurrence: None)
  Receive Date: 20110630
  Receipt Date: 20110630
  Transmission Date: 20111010
  Serious: Yes (Other)
  Sender: FDA-Public Use
  Company Number: None

PATIENT
  Sex: Male

DRUGS (2)
  1. FISH OIL [Concomitant]
  2. MANTOUX (PPD) [Suspect]
     Dosage: LEFT ARM INTRADERMAL
     Route: 023
     Dates: start: 20110610, end: 20110610

REACTIONS (1)
  - RASH [None]
